FAERS Safety Report 17272572 (Version 1)
Quarter: 2020Q1

REPORT INFORMATION
  Report Type: Spontaneous
  Country: US (occurrence: US)
  Receive Date: 20200109
  Receipt Date: 20200109
  Transmission Date: 20200409
  Serious: Yes (Other)
  Sender: FDA-Public Use
  Company Number: None

PATIENT
  Age: 58 Year
  Sex: Female

DRUGS (1)
  1. BLUEBIRD BOTANICALS BROAD SPECTRUM , HIGHEST DOSE TINCTURE [Suspect]
     Active Substance: CANNABIDIOL\HERBALS
     Indication: PAIN
     Route: 048
     Dates: start: 20190701, end: 20200108

REACTIONS (5)
  - Tremor [None]
  - Palpitations [None]
  - Speech disorder [None]
  - Chills [None]
  - Dysphagia [None]

NARRATIVE: CASE EVENT DATE: 20200108
